FAERS Safety Report 11307970 (Version 1)
Quarter: 2015Q3

REPORT INFORMATION
  Report Type: Report from Study
  Country: US (occurrence: US)
  Receive Date: 20150724
  Receipt Date: 20150724
  Transmission Date: 20151125
  Serious: Yes (Other)
  Sender: FDA-Public Use
  Company Number: US-AMGEN-USASL2015072681

PATIENT
  Age: 47 Year
  Sex: Female

DRUGS (1)
  1. ENBREL [Suspect]
     Active Substance: ETANERCEPT
     Indication: RHEUMATOID ARTHRITIS
     Dosage: UNK UNK, QWK
     Route: 065
     Dates: start: 20150320, end: 20150703

REACTIONS (6)
  - Rash [Unknown]
  - Erythema [Unknown]
  - Immunosuppression [Unknown]
  - Eye infection [Unknown]
  - Subcutaneous abscess [Unknown]
  - Urticaria [Unknown]

NARRATIVE: CASE EVENT DATE: 2015
